FAERS Safety Report 9027136 (Version 1)
Quarter: 2013Q1

REPORT INFORMATION
  Report Type: Spontaneous
  Country: US (occurrence: US)
  Receive Date: 20130123
  Receipt Date: 20130123
  Transmission Date: 20140127
  Serious: No
  Sender: FDA-Public Use
  Company Number: US-ASTRAZENECA-2013SE02269

PATIENT
  Sex: Female

DRUGS (3)
  1. CRESTOR [Suspect]
     Indication: DYSLIPIDAEMIA
     Route: 048
  2. ATORVASTATIN [Suspect]
     Route: 065
  3. SIMVASTATIN [Suspect]
     Route: 065

REACTIONS (2)
  - Feeling jittery [Recovered/Resolved]
  - Myalgia [Unknown]
